FAERS Safety Report 4316357-6 (Version None)
Quarter: 2004Q1

REPORT INFORMATION
  Report Type: 
  Country: None (occurrence: None)
  Receive Date: 20040311
  Receipt Date: 20040304
  Transmission Date: 20041129
  Serious: Yes (Life-Threatening)
  Sender: FDA-Public Use
  Company Number: HQWYE846105FEB04

PATIENT
  Age: 61 Year
  Sex: Male

DRUGS (35)
  1. GEMTUZUMAB OZOGAMICIN (GEMTUZUMAB OZOGAMICIN, INJECTION) [Suspect]
     Indication: ACUTE MYELOID LEUKAEMIA
     Dosage: SEE IMAGE
     Route: 041
     Dates: start: 20040105, end: 20040105
  2. GEMTUZUMAB OZOGAMICIN (GEMTUZUMAB OZOGAMICIN, INJECTION) [Suspect]
     Indication: ACUTE MYELOID LEUKAEMIA
     Dosage: SEE IMAGE
     Route: 041
     Dates: start: 20040122, end: 20040122
  3. BENAMBAX (PENTAMIDINE, ) [Suspect]
     Indication: PNEUMONIA
     Dosage: SEE IMAGE
     Route: 042
     Dates: start: 20040131, end: 20040201
  4. BENAMBAX (PENTAMIDINE, ) [Suspect]
     Indication: PNEUMONIA
     Dosage: SEE IMAGE
     Route: 042
     Dates: start: 20040202, end: 20040203
  5. BENAMBAX (PENTAMIDINE, ) [Suspect]
     Indication: PNEUMONIA
     Dosage: SEE IMAGE
     Route: 042
     Dates: start: 20040204, end: 20040208
  6. BENAMBAX (PENTAMIDINE, ) [Suspect]
     Indication: PNEUMONIA
     Dosage: SEE IMAGE
     Route: 042
     Dates: start: 20040216, end: 20040220
  7. FUNGIZONE [Suspect]
     Indication: INFECTION
     Dosage: SEE IMAGE
     Route: 041
     Dates: start: 20040117, end: 20040119
  8. FUNGIZONE [Suspect]
     Indication: INFECTION
     Dosage: SEE IMAGE
     Route: 041
     Dates: start: 20040120, end: 20040122
  9. FUNGIZONE [Suspect]
     Indication: INFECTION
     Dosage: SEE IMAGE
     Route: 041
     Dates: start: 20040123, end: 20040129
  10. FUNGIZONE [Suspect]
     Indication: INFECTION
     Dosage: SEE IMAGE
     Route: 041
     Dates: start: 20040130, end: 20040202
  11. FUNGIZONE [Suspect]
     Indication: INFECTION
     Dosage: SEE IMAGE
     Route: 041
     Dates: start: 20040206, end: 20040208
  12. FUNGIZONE [Suspect]
     Indication: INFECTION
     Dosage: SEE IMAGE
     Route: 041
     Dates: start: 20040209, end: 20040219
  13. MEROPENEM (MEROPENEM,  ) [Suspect]
     Indication: INFECTION
     Dosage: SEE IMAGE
     Route: 041
     Dates: start: 20040110, end: 20040110
  14. MEROPENEM (MEROPENEM,  ) [Suspect]
     Indication: INFECTION
     Dosage: SEE IMAGE
     Route: 041
     Dates: start: 20040111, end: 20040123
  15. MEROPENEM (MEROPENEM,  ) [Suspect]
     Indication: INFECTION
     Dosage: SEE IMAGE
     Route: 041
     Dates: start: 20040207, end: 20040219
  16. NEUTROGIN (LENOGRASTIM,  ) [Concomitant]
     Indication: NEUTROPHIL COUNT DECREASED
     Dosage: SEE IMAGE
     Route: 058
     Dates: start: 20040131, end: 20040203
  17. NEUTROGIN (LENOGRASTIM,  ) [Concomitant]
     Indication: NEUTROPHIL COUNT DECREASED
     Dosage: SEE IMAGE
     Route: 058
     Dates: start: 20040204, end: 20040209
  18. NEUTROGIN (LENOGRASTIM,  ) [Concomitant]
     Indication: NEUTROPHIL COUNT DECREASED
     Dosage: SEE IMAGE
     Route: 058
     Dates: start: 20040210, end: 20040215
  19. DIFLUCAN [Concomitant]
  20. SULFAMETHOXAZOLE AND TRIMETHOPRIM [Concomitant]
  21. SOLDEM 3 (GLUCOSE / POTASSIUM CHLORIDE / SODIUM CHLORIDE / SODIUM LACT [Concomitant]
  22. HEPARIN CALCIUM [Concomitant]
  23. MEYLON (SODIUM BICARBONATE) [Concomitant]
  24. SOLU-CORTEF [Concomitant]
  25. NOVAMIN (PROCHLORPERAZINE) [Concomitant]
  26. ROPION (FLURBIPROFEN AXETIL) [Concomitant]
  27. MAXIPIME [Concomitant]
  28. STRONG NEO-MINOPHAGEN C (AMINOACETIC ACID/CYSTEINE/GLYCYRRHIZIC ACID) [Concomitant]
  29. PRIMPERAN TAB [Concomitant]
  30. ALUMINIUM + MAGNESIUM HYDROXIDE/DIMETICONE (ALUMINIUM HYDROXIDE/DIMETI [Concomitant]
  31. TATHION (GLUTATHIONE) [Concomitant]
  32. ZYLORIC [Concomitant]
  33. MUCOSTA [Concomitant]
  34. ZANTAC [Concomitant]
  35. DIFLUCAN [Concomitant]

REACTIONS (12)
  - CARDIAC FAILURE [None]
  - CHEST DISCOMFORT [None]
  - CYTOMEGALOVIRUS INFECTION [None]
  - INTERSTITIAL LUNG DISEASE [None]
  - NEUTROPENIA [None]
  - PLEURAL EFFUSION [None]
  - PNEUMOCYSTIS CARINII PNEUMONIA [None]
  - PNEUMONIA FUNGAL [None]
  - PULMONARY ALVEOLAR HAEMORRHAGE [None]
  - PULMONARY OEDEMA [None]
  - VENTRICULAR EXTRASYSTOLES [None]
  - VENTRICULAR TACHYCARDIA [None]
